FAERS Safety Report 22331084 (Version 1)
Quarter: 2023Q2

REPORT INFORMATION
  Report Type: Spontaneous
  Country: US (occurrence: US)
  Receive Date: 20230517
  Receipt Date: 20230517
  Transmission Date: 20230722
  Serious: Yes (Other)
  Sender: FDA-Public Use
  Company Number: US-002147023-NVSC2023US108796

PATIENT
  Age: 17 Year
  Sex: Male

DRUGS (6)
  1. TRAMETINIB [Suspect]
     Active Substance: TRAMETINIB
     Indication: Astrocytoma malignant
     Dosage: UNK
     Route: 065
  2. TRAMETINIB [Suspect]
     Active Substance: TRAMETINIB
     Indication: Salvage therapy
  3. VINBLASTINE [Concomitant]
     Active Substance: VINBLASTINE
     Indication: Astrocytoma malignant
     Dosage: UNK
     Route: 065
  4. VINBLASTINE [Concomitant]
     Active Substance: VINBLASTINE
     Indication: Salvage therapy
  5. IMATINIB [Concomitant]
     Active Substance: IMATINIB
     Indication: Astrocytoma malignant
     Dosage: UNK
     Route: 065
  6. IMATINIB [Concomitant]
     Active Substance: IMATINIB
     Indication: Salvage therapy

REACTIONS (2)
  - Gastrointestinal haemorrhage [Recovered/Resolved]
  - Product use in unapproved indication [Unknown]
